FAERS Safety Report 9993291 (Version 1)
Quarter: 2014Q1

REPORT INFORMATION
  Report Type: Spontaneous
  Country: CN (occurrence: CN)
  Receive Date: 20140310
  Receipt Date: 20140310
  Transmission Date: 20141002
  Serious: Yes (Hospitalization, Other)
  Sender: FDA-Public Use
  Company Number: CN-NAPPMUNDI-DEU-2014-0013862

PATIENT
  Age: 82 Year
  Sex: Female

DRUGS (2)
  1. MS CONTIN [Suspect]
     Indication: PAIN
     Dosage: 70 MG, Q12H
     Route: 048
     Dates: start: 20140106, end: 20140110
  2. MS CONTIN [Suspect]
     Dosage: UNK UNK, SEE TEXT
     Dates: end: 20140105

REACTIONS (3)
  - Haemoptysis [Unknown]
  - Pain [Unknown]
  - Drug ineffective [Unknown]
